APPROVED DRUG PRODUCT: CONRAY 400
Active Ingredient: IOTHALAMATE SODIUM
Strength: 66.8%
Dosage Form/Route: INJECTABLE;INJECTION
Application: N014295 | Product #001
Applicant: MALLINCKRODT MEDICAL INC
Approved: Approved Prior to Jan 1, 1982 | RLD: No | RS: No | Type: DISCN